FAERS Safety Report 5529546-X (Version None)
Quarter: 2007Q4

REPORT INFORMATION
  Report Type: 
  Country: None (occurrence: None)
  Receive Date: 20071129
  Receipt Date: 20071121
  Transmission Date: 20080405
  Serious: Yes (Hospitalization)
  Sender: FDA-Public Use
  Company Number: JP-GENENTECH-246516

PATIENT
  Sex: Male
  Weight: 72 kg

DRUGS (1)
  1. RITUXAN [Suspect]
     Indication: NON-HODGKIN'S LYMPHOMA
     Dosage: 668 MG, QD
     Route: 042
     Dates: start: 20060726, end: 20060913

REACTIONS (1)
  - RECTOSIGMOID CANCER [None]
